FAERS Safety Report 4737753-9 (Version None)
Quarter: 2005Q3

REPORT INFORMATION
  Report Type: 
  Country: None (occurrence: None)
  Receive Date: 20050805
  Receipt Date: 20050728
  Transmission Date: 20060218
  Serious: Yes (Hospitalization)
  Sender: FDA-Public Use
  Company Number: 163-20785-05050325

PATIENT
  Age: 69 Year
  Sex: Female

DRUGS (14)
  1. THALOMID [Suspect]
     Indication: MULTIPLE MYELOMA
     Dosage: SEE IMAGE, ORAL
     Route: 048
     Dates: start: 20041229, end: 20050223
  2. THALOMID [Suspect]
     Indication: MULTIPLE MYELOMA
     Dosage: SEE IMAGE, ORAL
     Route: 048
     Dates: start: 20050224, end: 20050418
  3. THALOMID [Suspect]
     Indication: MULTIPLE MYELOMA
     Dosage: SEE IMAGE, ORAL
     Route: 048
     Dates: start: 20050419
  4. VELCADE [Concomitant]
  5. SPIRONOLACT (SPIRONOLACTONE) [Concomitant]
  6. NORVASC [Concomitant]
  7. MULTIVITAMIN [Concomitant]
  8. GLUCOSAMINE (GLUCOSAMINE) [Concomitant]
  9. CELEBREX [Concomitant]
  10. VITAMIN E [Concomitant]
  11. IRON (IRON) [Concomitant]
  12. CALCIUM (CALCIUM) [Concomitant]
  13. VITAMIN C (ASCORBIC ACID) [Concomitant]
  14. VICODIN [Concomitant]

REACTIONS (5)
  - HORDEOLUM [None]
  - METRORRHAGIA [None]
  - SARCOMA UTERUS [None]
  - VAGINAL DISCHARGE [None]
  - VAGINAL HAEMORRHAGE [None]
